FAERS Safety Report 8611234-4 (Version None)
Quarter: 2012Q3

REPORT INFORMATION
  Report Type: 
  Country: None (occurrence: None)
  Receive Date: 20120821
  Receipt Date: 20120820
  Transmission Date: 20120928
  Serious: Yes (Hospitalization)
  Sender: FDA-Public Use
  Company Number: DL2012-0690

PATIENT
  Age: 27 Year
  Sex: Female

DRUGS (3)
  1. MISOPROSTOL [Suspect]
     Dosage: 800 MCG, BUCCAL
     Route: 002
  2. DOXYCYCLINE HCL [Concomitant]
  3. MIFEPRISTONE (MIFEPREX) [Suspect]
     Indication: ABORTION
     Dosage: 200 MG, ORAL
     Route: 048
     Dates: start: 20120620

REACTIONS (2)
  - HAEMORRHAGE [None]
  - ANAEMIA [None]
